FAERS Safety Report 8599512-9 (Version None)
Quarter: 2012Q3

REPORT INFORMATION
  Report Type: 
  Country: None (occurrence: None)
  Receive Date: 20120816
  Receipt Date: 20120813
  Transmission Date: 20120928
  Serious: Yes (Hospitalization)
  Sender: FDA-Public Use
  Company Number: US-GILEAD-2012-0057704

PATIENT
  Sex: Male

DRUGS (4)
  1. LETAIRIS [Suspect]
     Indication: TRANSPOSITION OF THE GREAT VESSELS
  2. LETAIRIS [Suspect]
     Indication: EISENMENGER'S SYNDROME
  3. LETAIRIS [Suspect]
     Indication: VENTRICULAR SEPTAL DEFECT
  4. LETAIRIS [Suspect]
     Indication: PULMONARY HYPERTENSION
     Dosage: 10 MG, UNK
     Route: 048
     Dates: start: 20120210

REACTIONS (1)
  - CARDIAC PACEMAKER INSERTION [None]
